FAERS Safety Report 5101937-0 (Version None)
Quarter: 2006Q3

REPORT INFORMATION
  Report Type: 
  Country: None (occurrence: None)
  Receive Date: 20060907
  Receipt Date: 20060825
  Transmission Date: 20061208
  Serious: Yes (Hospitalization)
  Sender: FDA-Public Use
  Company Number: 2006PV020110

PATIENT
  Age: 72 Year
  Sex: Female
  Weight: 113.3993 kg

DRUGS (8)
  1. BYETTA [Suspect]
     Indication: DIABETES MELLITUS NON-INSULIN-DEPENDENT
     Dosage: 5 MCG; BID; SC;  10 MCG; BID; SC
     Route: 058
     Dates: start: 20050101, end: 20050101
  2. BYETTA [Suspect]
     Indication: DIABETES MELLITUS NON-INSULIN-DEPENDENT
     Dosage: 5 MCG; BID; SC;  10 MCG; BID; SC
     Route: 058
     Dates: start: 20050101, end: 20060101
  3. LIPITOR [Concomitant]
  4. NEXIUM [Concomitant]
  5. COLCHICINE [Concomitant]
  6. CYMBALTA [Concomitant]
  7. METHOTREXATE [Concomitant]
  8. OXYGEN [Concomitant]

REACTIONS (2)
  - BALANCE DISORDER [None]
  - CYSTITIS [None]
